FAERS Safety Report 6033419-6 (Version None)
Quarter: 2009Q1

REPORT INFORMATION
  Report Type: 
  Country: None (occurrence: None)
  Receive Date: 20090109
  Receipt Date: 20081230
  Transmission Date: 20090719
  Serious: Yes (Life-Threatening, Hospitalization)
  Sender: FDA-Public Use
  Company Number: US-PFIZER INC-2009151341

PATIENT
  Age: 9 Year
  Sex: Male
  Weight: 31.2 kg

DRUGS (1)
  1. SERTRALINE HCL [Suspect]
     Indication: ABNORMAL BEHAVIOUR
     Dosage: 50 MG, SINGLE
     Route: 048

REACTIONS (4)
  - ENCEPHALOPATHY [None]
  - PYREXIA [None]
  - RHABDOMYOLYSIS [None]
  - SEROTONIN SYNDROME [None]
